FAERS Safety Report 12994388 (Version 1)
Quarter: 2016Q4

REPORT INFORMATION
  Report Type: Spontaneous
  Country: US (occurrence: US)
  Receive Date: 20161202
  Receipt Date: 20161202
  Transmission Date: 20170207
  Serious: Yes (Other)
  Sender: FDA-Public Use
  Company Number: None

PATIENT
  Age: 85 Year
  Sex: Female
  Weight: 58.5 kg

DRUGS (1)
  1. JADENU [Suspect]
     Active Substance: DEFERASIROX
     Indication: SERUM FERRITIN INCREASED
     Route: 048
     Dates: start: 20150601, end: 20150610

REACTIONS (6)
  - Abasia [None]
  - Hypoaesthesia [None]
  - Back pain [None]
  - Nausea [None]
  - Peripheral swelling [None]
  - Neck pain [None]

NARRATIVE: CASE EVENT DATE: 20150601
